FAERS Safety Report 20245809 (Version 1)
Quarter: 2021Q4

REPORT INFORMATION
  Report Type: Spontaneous
  Country: US (occurrence: US)
  Receive Date: 20211229
  Receipt Date: 20211229
  Transmission Date: 20220304
  Serious: Yes (Hospitalization)
  Sender: FDA-Public Use
  Company Number: US-TAKEDA-2021TUS082325

PATIENT
  Sex: Male

DRUGS (1)
  1. EXKIVITY [Suspect]
     Active Substance: MOBOCERTINIB
     Indication: Lung carcinoma cell type unspecified stage 0
     Dosage: 160 MILLIGRAM, QD
     Route: 048
     Dates: start: 20211001

REACTIONS (2)
  - Cardiac disorder [Unknown]
  - Drug ineffective [Unknown]
